FAERS Safety Report 19822823 (Version 4)
Quarter: 2022Q2

REPORT INFORMATION
  Report Type: Spontaneous
  Country: CA (occurrence: CA)
  Receive Date: 20210913
  Receipt Date: 20220429
  Transmission Date: 20220721
  Serious: Yes (Hospitalization, Other)
  Sender: FDA-Public Use
  Company Number: CA-ASTELLAS-2021US033718

PATIENT
  Age: 56 Year
  Sex: Female
  Weight: 58 kg

DRUGS (142)
  1. TACROLIMUS [Interacting]
     Active Substance: TACROLIMUS
     Indication: Renal transplant
     Route: 065
     Dates: start: 20210326
  2. TACROLIMUS [Interacting]
     Active Substance: TACROLIMUS
     Indication: Immunosuppressant drug level increased
     Route: 065
     Dates: start: 20210327
  3. TACROLIMUS [Interacting]
     Active Substance: TACROLIMUS
     Indication: Immunosuppressant drug therapy
     Route: 065
     Dates: start: 20210328
  4. TACROLIMUS [Interacting]
     Active Substance: TACROLIMUS
     Route: 065
     Dates: start: 20210329
  5. TACROLIMUS [Interacting]
     Active Substance: TACROLIMUS
     Route: 065
     Dates: start: 20210403, end: 20210404
  6. TACROLIMUS [Interacting]
     Active Substance: TACROLIMUS
     Route: 065
     Dates: start: 20210404
  7. TACROLIMUS [Interacting]
     Active Substance: TACROLIMUS
     Dosage: UNK UNK, UNKNOWN FREQ.
     Route: 065
     Dates: start: 20210405
  8. TACROLIMUS [Interacting]
     Active Substance: TACROLIMUS
     Dosage: UNK UNK, UNKNOWN FREQ.
     Route: 065
     Dates: start: 20210406
  9. TACROLIMUS [Interacting]
     Active Substance: TACROLIMUS
     Dosage: 0.5 MG, UNKNOWN FREQ.
     Route: 065
     Dates: start: 20210407
  10. TACROLIMUS [Interacting]
     Active Substance: TACROLIMUS
     Dosage: 0.5 MG, UNKNOWN FREQ.
     Route: 065
     Dates: start: 20210409
  11. TACROLIMUS [Interacting]
     Active Substance: TACROLIMUS
     Dosage: 0.5 MG, UNKNOWN FREQ.
     Route: 065
     Dates: start: 20210413
  12. TACROLIMUS [Interacting]
     Active Substance: TACROLIMUS
     Dosage: 0.5 MG, UNKNOWN FREQ.
     Route: 065
     Dates: start: 20210416
  13. TACROLIMUS [Interacting]
     Active Substance: TACROLIMUS
     Dosage: 0.5 MG, UNKNOWN FREQ.
     Route: 065
     Dates: start: 20210420
  14. TACROLIMUS [Interacting]
     Active Substance: TACROLIMUS
     Dosage: 0.5 MG, UNKNOWN FREQ.
     Route: 065
     Dates: start: 20210423
  15. TACROLIMUS [Interacting]
     Active Substance: TACROLIMUS
     Dosage: 0.5 MG, UNKNOWN FREQ.
     Route: 065
     Dates: start: 20210427
  16. TACROLIMUS [Interacting]
     Active Substance: TACROLIMUS
     Dosage: 0.5 MG, UNKNOWN FREQ.
     Route: 065
     Dates: start: 20210430
  17. TACROLIMUS [Interacting]
     Active Substance: TACROLIMUS
     Dosage: 0.5 MG, UNKNOWN FREQ.
     Route: 065
     Dates: start: 20210504
  18. TACROLIMUS [Interacting]
     Active Substance: TACROLIMUS
     Dosage: 0.5 MG, UNKNOWN FREQ.
     Route: 065
     Dates: start: 20210510
  19. TACROLIMUS [Interacting]
     Active Substance: TACROLIMUS
     Dosage: 0.5 MG, UNKNOWN FREQ.
     Route: 065
     Dates: start: 20210520
  20. TACROLIMUS [Interacting]
     Active Substance: TACROLIMUS
     Dosage: UNK UNK, UNKNOWN FREQ.
     Route: 065
     Dates: start: 20210526
  21. TACROLIMUS [Interacting]
     Active Substance: TACROLIMUS
     Dosage: 0.5 MG, OTHER (1 EVERY 10 DAYS)
     Route: 065
  22. TACROLIMUS [Interacting]
     Active Substance: TACROLIMUS
     Dosage: UNK UNK, UNKNOWN FREQ.
     Route: 065
  23. TACROLIMUS [Interacting]
     Active Substance: TACROLIMUS
     Route: 065
  24. TACROLIMUS [Suspect]
     Active Substance: TACROLIMUS
     Indication: Immunosuppressant drug level increased
     Dosage: 1 MG, EVERY 12 HOURS (GLOBULE)
     Route: 065
  25. TACROLIMUS [Suspect]
     Active Substance: TACROLIMUS
     Indication: Immunosuppressant drug level increased
     Dosage: 0.5 MG, ONCE DAILY
     Route: 065
  26. TACROLIMUS [Suspect]
     Active Substance: TACROLIMUS
     Indication: Renal transplant
     Route: 065
  27. ABACAVIR [Interacting]
     Active Substance: ABACAVIR
     Indication: HIV infection
     Route: 065
     Dates: start: 2015
  28. ABACAVIR [Interacting]
     Active Substance: ABACAVIR
     Dosage: UNK UNK, UNKNOWN FREQ.
     Route: 065
     Dates: start: 20210326
  29. ABACAVIR [Interacting]
     Active Substance: ABACAVIR
     Dosage: UNK UNK, UNKNOWN FREQ.
     Route: 065
     Dates: start: 20210327
  30. ABACAVIR [Interacting]
     Active Substance: ABACAVIR
     Dosage: UNK UNK, UNKNOWN FREQ.
     Route: 065
     Dates: start: 20210328
  31. ABACAVIR [Interacting]
     Active Substance: ABACAVIR
     Dosage: UNK UNK, UNKNOWN FREQ.
     Route: 065
     Dates: start: 20210329
  32. ABACAVIR [Interacting]
     Active Substance: ABACAVIR
     Dosage: UNK UNK, UNKNOWN FREQ.
     Route: 065
     Dates: start: 20210330
  33. ABACAVIR [Interacting]
     Active Substance: ABACAVIR
     Dosage: UNK UNK, UNKNOWN FREQ.
     Route: 065
     Dates: start: 20210331
  34. ABACAVIR [Interacting]
     Active Substance: ABACAVIR
     Dosage: UNK UNK, UNKNOWN FREQ.
     Route: 065
     Dates: start: 20210401
  35. ABACAVIR [Interacting]
     Active Substance: ABACAVIR
     Dosage: UNK UNK, UNKNOWN FREQ.
     Route: 065
     Dates: start: 20210405
  36. ABACAVIR [Interacting]
     Active Substance: ABACAVIR
     Dosage: UNK UNK, UNKNOWN FREQ.
     Route: 065
     Dates: start: 20210406
  37. ABACAVIR [Interacting]
     Active Substance: ABACAVIR
     Dosage: UNK UNK, UNKNOWN FREQ.
     Route: 065
     Dates: start: 20210407
  38. ABACAVIR [Interacting]
     Active Substance: ABACAVIR
     Dosage: UNK UNK, UNKNOWN FREQ.
     Route: 065
     Dates: start: 20210409
  39. ABACAVIR [Interacting]
     Active Substance: ABACAVIR
     Dosage: UNK UNK, UNKNOWN FREQ.
     Route: 065
     Dates: start: 20210413
  40. ABACAVIR [Interacting]
     Active Substance: ABACAVIR
     Dosage: UNK UNK, UNKNOWN FREQ.
     Route: 065
     Dates: start: 20210416
  41. ABACAVIR [Interacting]
     Active Substance: ABACAVIR
     Dosage: UNK UNK, UNKNOWN FREQ.
     Route: 065
     Dates: start: 20210420
  42. ABACAVIR [Interacting]
     Active Substance: ABACAVIR
     Dosage: UNK UNK, UNKNOWN FREQ.
     Route: 065
     Dates: start: 20210423
  43. ABACAVIR [Interacting]
     Active Substance: ABACAVIR
     Dosage: UNK UNK, UNKNOWN FREQ.
     Route: 065
     Dates: start: 20210427
  44. ABACAVIR [Interacting]
     Active Substance: ABACAVIR
     Dosage: UNK UNK, UNKNOWN FREQ.
     Route: 065
     Dates: start: 20210430
  45. ABACAVIR [Interacting]
     Active Substance: ABACAVIR
     Dosage: UNK UNK, UNKNOWN FREQ.
     Route: 065
     Dates: start: 20210504
  46. ABACAVIR [Interacting]
     Active Substance: ABACAVIR
     Dosage: UNK UNK, UNKNOWN FREQ.
     Route: 065
     Dates: start: 20210510
  47. ABACAVIR [Interacting]
     Active Substance: ABACAVIR
     Dosage: UNK UNK, UNKNOWN FREQ.
     Route: 065
     Dates: start: 20210520
  48. ABACAVIR [Interacting]
     Active Substance: ABACAVIR
     Dosage: UNK UNK, UNKNOWN FREQ.
     Route: 065
     Dates: start: 20210526
  49. ABACAVIR [Interacting]
     Active Substance: ABACAVIR
     Dosage: UNK UNK, UNKNOWN FREQ.
     Route: 065
     Dates: start: 20210526
  50. ABACAVIR [Interacting]
     Active Substance: ABACAVIR
     Dosage: UNK UNK, UNKNOWN FREQ.
     Route: 065
  51. ABACAVIR [Concomitant]
     Active Substance: ABACAVIR
     Indication: HIV infection
     Route: 065
  52. ABACAVIR [Concomitant]
     Active Substance: ABACAVIR
     Indication: Antiretroviral therapy
  53. ABACAVIR [Suspect]
     Active Substance: ABACAVIR
     Indication: HIV infection
     Route: 065
  54. DOLUTEGRAVIR [Interacting]
     Active Substance: DOLUTEGRAVIR
     Indication: HIV infection
     Route: 065
     Dates: start: 2015
  55. DOLUTEGRAVIR [Interacting]
     Active Substance: DOLUTEGRAVIR
     Dosage: UNK UNK, UNKNOWN FREQ.
     Route: 065
     Dates: start: 20210326
  56. DOLUTEGRAVIR [Interacting]
     Active Substance: DOLUTEGRAVIR
     Dosage: UNK UNK, UNKNOWN FREQ.
     Route: 065
     Dates: start: 20210327
  57. DOLUTEGRAVIR [Interacting]
     Active Substance: DOLUTEGRAVIR
     Dosage: UNK UNK, UNKNOWN FREQ.
     Route: 065
     Dates: start: 20210328
  58. DOLUTEGRAVIR [Interacting]
     Active Substance: DOLUTEGRAVIR
     Dosage: UNK UNK, UNKNOWN FREQ.
     Route: 065
     Dates: start: 20210329
  59. DOLUTEGRAVIR [Interacting]
     Active Substance: DOLUTEGRAVIR
     Dosage: UNK UNK, UNKNOWN FREQ.
     Route: 065
     Dates: start: 20210330
  60. DOLUTEGRAVIR [Interacting]
     Active Substance: DOLUTEGRAVIR
     Dosage: UNK UNK, UNKNOWN FREQ.
     Route: 065
     Dates: start: 20210331
  61. DOLUTEGRAVIR [Interacting]
     Active Substance: DOLUTEGRAVIR
     Dosage: UNK UNK, UNKNOWN FREQ.
     Route: 065
     Dates: start: 20210401
  62. DOLUTEGRAVIR [Interacting]
     Active Substance: DOLUTEGRAVIR
     Dosage: UNK UNK, UNKNOWN FREQ.
     Route: 065
     Dates: start: 20210405
  63. DOLUTEGRAVIR [Interacting]
     Active Substance: DOLUTEGRAVIR
     Dosage: UNK UNK, UNKNOWN FREQ.
     Route: 065
     Dates: start: 20210406
  64. DOLUTEGRAVIR [Interacting]
     Active Substance: DOLUTEGRAVIR
     Dosage: UNK UNK, UNKNOWN FREQ.
     Route: 065
     Dates: start: 20210407
  65. DOLUTEGRAVIR [Interacting]
     Active Substance: DOLUTEGRAVIR
     Dosage: UNK UNK, UNKNOWN FREQ.
     Route: 065
     Dates: start: 20210409
  66. DOLUTEGRAVIR [Interacting]
     Active Substance: DOLUTEGRAVIR
     Dosage: UNK UNK, UNKNOWN FREQ.
     Route: 065
     Dates: start: 20210413
  67. DOLUTEGRAVIR [Interacting]
     Active Substance: DOLUTEGRAVIR
     Dosage: UNK UNK, UNKNOWN FREQ.
     Route: 065
     Dates: start: 20210416
  68. DOLUTEGRAVIR [Interacting]
     Active Substance: DOLUTEGRAVIR
     Dosage: UNK UNK, UNKNOWN FREQ.
     Route: 065
     Dates: start: 20210420
  69. DOLUTEGRAVIR [Interacting]
     Active Substance: DOLUTEGRAVIR
     Dosage: UNK UNK, UNKNOWN FREQ.
     Route: 065
     Dates: start: 20210423
  70. DOLUTEGRAVIR [Interacting]
     Active Substance: DOLUTEGRAVIR
     Dosage: UNK UNK, UNKNOWN FREQ.
     Route: 065
     Dates: start: 20210427
  71. DOLUTEGRAVIR [Interacting]
     Active Substance: DOLUTEGRAVIR
     Dosage: UNK UNK, UNKNOWN FREQ.
     Route: 065
     Dates: start: 20210430
  72. DOLUTEGRAVIR [Interacting]
     Active Substance: DOLUTEGRAVIR
     Dosage: UNK UNK, UNKNOWN FREQ.
     Route: 065
     Dates: start: 20210504
  73. DOLUTEGRAVIR [Interacting]
     Active Substance: DOLUTEGRAVIR
     Dosage: UNK UNK, UNKNOWN FREQ.
     Route: 065
     Dates: start: 20210510
  74. DOLUTEGRAVIR [Interacting]
     Active Substance: DOLUTEGRAVIR
     Dosage: UNK UNK, UNKNOWN FREQ.
     Route: 065
     Dates: start: 20210520
  75. DOLUTEGRAVIR [Interacting]
     Active Substance: DOLUTEGRAVIR
     Dosage: UNK UNK, UNKNOWN FREQ.
     Route: 065
     Dates: start: 20210526
  76. DOLUTEGRAVIR [Interacting]
     Active Substance: DOLUTEGRAVIR
     Dosage: UNK UNK, UNKNOWN FREQ.
     Route: 065
  77. DOLUTEGRAVIR [Concomitant]
     Active Substance: DOLUTEGRAVIR
     Indication: HIV infection
     Route: 065
  78. DOLUTEGRAVIR [Concomitant]
     Active Substance: DOLUTEGRAVIR
     Indication: Antiretroviral therapy
  79. DARUNAVIR [Interacting]
     Active Substance: DARUNAVIR
     Indication: HIV infection
     Dosage: 600 MG, TWICE DAILY (EVERY 12 HOUR)
     Route: 065
     Dates: start: 2015
  80. DARUNAVIR [Interacting]
     Active Substance: DARUNAVIR
     Dosage: UNK UNK, UNKNOWN FREQ.
     Route: 065
     Dates: start: 20210326
  81. DARUNAVIR [Interacting]
     Active Substance: DARUNAVIR
     Dosage: UNK UNK, UNKNOWN FREQ.
     Route: 065
     Dates: start: 20210327
  82. DARUNAVIR [Interacting]
     Active Substance: DARUNAVIR
     Dosage: UNK UNK, UNKNOWN FREQ.
     Route: 065
     Dates: start: 20210328
  83. DARUNAVIR [Interacting]
     Active Substance: DARUNAVIR
     Dosage: UNK UNK, UNKNOWN FREQ.
     Route: 065
     Dates: start: 20210329
  84. DARUNAVIR [Interacting]
     Active Substance: DARUNAVIR
     Dosage: UNK UNK, UNKNOWN FREQ.
     Route: 065
     Dates: start: 20210330
  85. DARUNAVIR [Interacting]
     Active Substance: DARUNAVIR
     Dosage: UNK UNK, UNKNOWN FREQ.
     Route: 065
     Dates: start: 20210331
  86. DARUNAVIR [Interacting]
     Active Substance: DARUNAVIR
     Dosage: UNK UNK, UNKNOWN FREQ.
     Route: 065
     Dates: start: 20210405
  87. DARUNAVIR [Interacting]
     Active Substance: DARUNAVIR
     Dosage: UNK UNK, UNKNOWN FREQ.
     Route: 065
     Dates: start: 20210406
  88. DARUNAVIR [Interacting]
     Active Substance: DARUNAVIR
     Dosage: UNK UNK, UNKNOWN FREQ.
     Route: 065
     Dates: start: 20210407
  89. DARUNAVIR [Interacting]
     Active Substance: DARUNAVIR
     Dosage: UNK UNK, UNKNOWN FREQ.
     Route: 065
     Dates: start: 20210409
  90. DARUNAVIR [Interacting]
     Active Substance: DARUNAVIR
     Dosage: UNK UNK, UNKNOWN FREQ.
     Route: 065
     Dates: start: 20210413
  91. DARUNAVIR [Interacting]
     Active Substance: DARUNAVIR
     Dosage: UNK UNK, UNKNOWN FREQ.
     Route: 065
     Dates: start: 20210416
  92. DARUNAVIR [Interacting]
     Active Substance: DARUNAVIR
     Dosage: UNK UNK, UNKNOWN FREQ.
     Route: 065
     Dates: start: 20210420
  93. DARUNAVIR [Interacting]
     Active Substance: DARUNAVIR
     Dosage: UNK UNK, UNKNOWN FREQ.
     Route: 065
     Dates: start: 20210423
  94. DARUNAVIR [Interacting]
     Active Substance: DARUNAVIR
     Dosage: UNK UNK, UNKNOWN FREQ.
     Route: 065
     Dates: start: 20210427
  95. DARUNAVIR [Interacting]
     Active Substance: DARUNAVIR
     Dosage: UNK UNK, UNKNOWN FREQ.
     Route: 065
     Dates: start: 20210430
  96. DARUNAVIR [Interacting]
     Active Substance: DARUNAVIR
     Dosage: UNK UNK, UNKNOWN FREQ.
     Route: 065
     Dates: start: 20210504
  97. DARUNAVIR [Interacting]
     Active Substance: DARUNAVIR
     Dosage: UNK UNK, UNKNOWN FREQ.
     Route: 065
     Dates: start: 20210510
  98. DARUNAVIR [Interacting]
     Active Substance: DARUNAVIR
     Dosage: UNK UNK, UNKNOWN FREQ.
     Route: 065
     Dates: start: 20210520
  99. DARUNAVIR [Interacting]
     Active Substance: DARUNAVIR
     Dosage: UNK UNK, UNKNOWN FREQ.
     Route: 065
     Dates: start: 20210526
  100. DARUNAVIR [Interacting]
     Active Substance: DARUNAVIR
     Dosage: UNK UNK, UNKNOWN FREQ.
     Route: 065
  101. DARUNAVIR [Suspect]
     Active Substance: DARUNAVIR
     Indication: HIV infection
     Route: 065
  102. RITONAVIR [Interacting]
     Active Substance: RITONAVIR
     Indication: HIV infection
     Route: 048
     Dates: start: 2015
  103. RITONAVIR [Interacting]
     Active Substance: RITONAVIR
     Indication: Antiretroviral therapy
     Dosage: UNK UNK, UNKNOWN FREQ.
     Route: 065
     Dates: start: 20210326
  104. RITONAVIR [Interacting]
     Active Substance: RITONAVIR
     Dosage: UNK UNK, UNKNOWN FREQ.
     Route: 065
     Dates: start: 20210327
  105. RITONAVIR [Interacting]
     Active Substance: RITONAVIR
     Dosage: UNK UNK, UNKNOWN FREQ.
     Route: 065
     Dates: start: 20210328
  106. RITONAVIR [Interacting]
     Active Substance: RITONAVIR
     Dosage: UNK UNK, UNKNOWN FREQ.
     Route: 065
     Dates: start: 20210329
  107. RITONAVIR [Interacting]
     Active Substance: RITONAVIR
     Dosage: UNK UNK, UNKNOWN FREQ.
     Route: 065
     Dates: start: 20210330
  108. RITONAVIR [Interacting]
     Active Substance: RITONAVIR
     Dosage: UNK UNK, UNKNOWN FREQ.
     Route: 065
     Dates: start: 20210331
  109. RITONAVIR [Interacting]
     Active Substance: RITONAVIR
     Dosage: UNK UNK, UNKNOWN FREQ.
     Route: 065
     Dates: start: 20210405
  110. RITONAVIR [Interacting]
     Active Substance: RITONAVIR
     Dosage: UNK UNK, UNKNOWN FREQ.
     Route: 065
     Dates: start: 20210406
  111. RITONAVIR [Interacting]
     Active Substance: RITONAVIR
     Dosage: UNK UNK, UNKNOWN FREQ.
     Route: 065
     Dates: start: 20210407
  112. RITONAVIR [Interacting]
     Active Substance: RITONAVIR
     Dosage: UNK UNK, UNKNOWN FREQ.
     Route: 065
     Dates: start: 20210409
  113. RITONAVIR [Interacting]
     Active Substance: RITONAVIR
     Dosage: UNK UNK, UNKNOWN FREQ.
     Route: 065
     Dates: start: 20210413
  114. RITONAVIR [Interacting]
     Active Substance: RITONAVIR
     Dosage: UNK UNK, UNKNOWN FREQ.
     Route: 065
     Dates: start: 20210416
  115. RITONAVIR [Interacting]
     Active Substance: RITONAVIR
     Dosage: UNK UNK, UNKNOWN FREQ.
     Route: 065
     Dates: start: 20210420
  116. RITONAVIR [Interacting]
     Active Substance: RITONAVIR
     Dosage: UNK UNK, UNKNOWN FREQ.
     Route: 065
     Dates: start: 20210423
  117. RITONAVIR [Interacting]
     Active Substance: RITONAVIR
     Dosage: UNK UNK, UNKNOWN FREQ.
     Route: 065
     Dates: start: 20210427
  118. RITONAVIR [Interacting]
     Active Substance: RITONAVIR
     Dosage: UNK UNK, UNKNOWN FREQ.
     Route: 065
     Dates: start: 20210430
  119. RITONAVIR [Interacting]
     Active Substance: RITONAVIR
     Dosage: UNK UNK, UNKNOWN FREQ.
     Route: 065
     Dates: start: 20210504
  120. RITONAVIR [Interacting]
     Active Substance: RITONAVIR
     Dosage: UNK UNK, UNKNOWN FREQ.
     Route: 065
     Dates: start: 20210510
  121. RITONAVIR [Interacting]
     Active Substance: RITONAVIR
     Dosage: UNK UNK, UNKNOWN FREQ.
     Route: 065
     Dates: start: 20210520
  122. RITONAVIR [Interacting]
     Active Substance: RITONAVIR
     Dosage: UNK UNK, UNKNOWN FREQ.
     Route: 065
     Dates: start: 20210526
  123. RITONAVIR [Interacting]
     Active Substance: RITONAVIR
     Route: 048
  124. RITONAVIR [Interacting]
     Active Substance: RITONAVIR
     Dosage: UNK UNK, UNKNOWN FREQ.
     Route: 048
  125. RITONAVIR [Interacting]
     Active Substance: RITONAVIR
     Route: 065
  126. MYCOPHENOLATE MOFETIL [Concomitant]
     Active Substance: MYCOPHENOLATE MOFETIL
     Indication: Immunosuppressant drug therapy
     Dosage: UNK UNK, UNKNOWN FREQ.
     Route: 065
     Dates: start: 202103
  127. MYCOPHENOLATE MOFETIL [Concomitant]
     Active Substance: MYCOPHENOLATE MOFETIL
     Indication: Renal transplant
  128. PREDNISONE [Concomitant]
     Active Substance: PREDNISONE
     Indication: Immunosuppressant drug level increased
     Dosage: UNK UNK, UNKNOWN FREQ.
     Route: 065
     Dates: start: 202103
  129. PREDNISONE [Concomitant]
     Active Substance: PREDNISONE
     Indication: Renal transplant
  130. PREDNISONE [Concomitant]
     Active Substance: PREDNISONE
     Indication: Immunosuppressant drug therapy
  131. PANTOPRAZOLE [Concomitant]
     Active Substance: PANTOPRAZOLE
     Indication: Renal transplant
     Dosage: UNK UNK, UNKNOWN FREQ.
     Route: 065
     Dates: start: 202103
  132. PANTOPRAZOLE [Concomitant]
     Active Substance: PANTOPRAZOLE
     Indication: Immunosuppressant drug therapy
  133. AMLODIPINE [Concomitant]
     Active Substance: AMLODIPINE BESYLATE
     Indication: Renal transplant
     Dosage: UNK UNK, UNKNOWN FREQ.
     Route: 065
     Dates: start: 202103
  134. AMLODIPINE [Concomitant]
     Active Substance: AMLODIPINE BESYLATE
     Indication: Immunosuppressant drug therapy
  135. SULFAMETHOXAZOLE\TRIMETHOPRIM [Concomitant]
     Active Substance: SULFAMETHOXAZOLE\TRIMETHOPRIM
     Indication: Renal transplant
     Dosage: UNK UNK, UNKNOWN FREQ.
     Route: 065
     Dates: start: 202103
  136. FERROUS FUMARATE [Concomitant]
     Active Substance: FERROUS FUMARATE
     Indication: Renal transplant
     Dosage: UNK UNK, UNKNOWN FREQ.
     Route: 065
     Dates: start: 202103
  137. FERROUS FUMARATE [Concomitant]
     Active Substance: FERROUS FUMARATE
     Indication: Immunosuppressant drug therapy
  138. MYCOPHENOLIC ACID [Concomitant]
     Active Substance: MYCOPHENOLIC ACID
     Indication: Immunosuppressant drug therapy
     Dosage: UNK UNK, UNKNOWN FREQ.
     Route: 065
  139. DARUNAVIR [Concomitant]
     Active Substance: DARUNAVIR
     Indication: HIV infection
     Dosage: UNK UNK, UNKNOWN FREQ.
     Route: 065
  140. DARUNAVIR [Concomitant]
     Active Substance: DARUNAVIR
     Indication: Antiretroviral therapy
  141. SULFAMETHOXAZOLE [Concomitant]
     Active Substance: SULFAMETHOXAZOLE
     Indication: Renal transplant
     Dosage: UNK UNK, UNKNOWN FREQ.
     Route: 065
  142. SULFAMETHOXAZOLE [Concomitant]
     Active Substance: SULFAMETHOXAZOLE
     Indication: Immunosuppressant drug therapy

REACTIONS (6)
  - Toxicity to various agents [Unknown]
  - Nephropathy toxic [Unknown]
  - Diabetes mellitus [Unknown]
  - Immunosuppressant drug level increased [Recovered/Resolved]
  - Immunosuppressant drug level increased [Unknown]
  - Drug interaction [Unknown]

NARRATIVE: CASE EVENT DATE: 20210101
